FAERS Safety Report 6342802-0 (Version None)
Quarter: 2009Q3

REPORT INFORMATION
  Report Type: 
  Country: None (occurrence: None)
  Receive Date: 20090908
  Receipt Date: 20090827
  Transmission Date: 20100115
  Serious: Yes (Hospitalization)
  Sender: FDA-Public Use
  Company Number: TH-ASTRAZENECA-2009SE10221

PATIENT
  Sex: Female

DRUGS (3)
  1. CRESTOR [Suspect]
     Route: 048
     Dates: start: 20090827, end: 20090827
  2. BLOPRESS [Suspect]
     Dosage: MANY TABLETS
     Route: 048
     Dates: start: 20090827, end: 20090827
  3. UNSPECIFIED SLEEPING PILL [Suspect]
     Dosage: MANY TABLETS
     Dates: start: 20090827, end: 20090827

REACTIONS (3)
  - LOSS OF CONSCIOUSNESS [None]
  - OVERDOSE [None]
  - SUICIDE ATTEMPT [None]
